FAERS Safety Report 12348264 (Version 1)
Quarter: 2016Q2

REPORT INFORMATION
  Report Type: Spontaneous
  Country: US (occurrence: US)
  Receive Date: 20160509
  Receipt Date: 20160509
  Transmission Date: 20160815
  Serious: Yes (Other)
  Sender: FDA-Public Use
  Company Number: US-PFIZER INC-2016244761

PATIENT

DRUGS (1)
  1. BENZYLPENICILLIN POTASSIUM [Suspect]
     Active Substance: PENICILLIN G POTASSIUM
     Dosage: UNK, EVERY 4 HRS (12,000,000 UNITS)
     Route: 042

REACTIONS (4)
  - Anal incontinence [Unknown]
  - Toxicity to various agents [Unknown]
  - Seizure [Unknown]
  - Cyanosis [Unknown]
